FAERS Safety Report 8213492-7 (Version None)
Quarter: 2012Q1

REPORT INFORMATION
  Report Type: 
  Country: None (occurrence: None)
  Receive Date: 20120315
  Receipt Date: 20120313
  Transmission Date: 20120608
  Serious: Yes (Hospitalization, Other)
  Sender: FDA-Public Use
  Company Number: GB-MERCK-1203GBR00040

PATIENT
  Age: 72 Year
  Sex: Male
  Weight: 94 kg

DRUGS (10)
  1. ALFACALCIDOL [Concomitant]
     Route: 065
  2. WARFARIN [Concomitant]
     Route: 065
  3. INSULIN LISPRO, BIPHASIC ISOPHANE [INJECTION] [Concomitant]
     Route: 065
  4. ACETAMINOPHEN [Concomitant]
     Route: 065
  5. ATORVASTATIN [Concomitant]
     Route: 065
  6. BISOPROLOL [Concomitant]
     Route: 065
  7. OXYBUTYNIN [Concomitant]
     Route: 065
  8. INVANZ [Suspect]
     Indication: OSTEOMYELITIS
     Route: 041
     Dates: start: 20120223, end: 20120226
  9. AMITRIPTYLINE HYDROCHLORIDE [Concomitant]
     Route: 065
  10. MEROPENEM [Concomitant]
     Route: 065

REACTIONS (3)
  - RESPIRATORY ARREST [None]
  - CARDIAC ARREST [None]
  - CONVULSION [None]
